FAERS Safety Report 9705497 (Version 4)
Quarter: 2014Q1

REPORT INFORMATION
  Report Type: Spontaneous
  Country: JP (occurrence: JP)
  Receive Date: 20131122
  Receipt Date: 20140102
  Transmission Date: 20141002
  Serious: Yes (Hospitalization, Other)
  Sender: FDA-Public Use
  Company Number: JP-009507513-1311JPN008482

PATIENT
  Age: 40 Year
  Sex: Female
  Weight: 37 kg

DRUGS (5)
  1. GASTER D [Suspect]
     Indication: GASTRITIS
     Dosage: 10 MG, BID
     Route: 048
     Dates: start: 20090110
  2. PROGRAF [Suspect]
     Indication: IMMUNOSUPPRESSANT DRUG THERAPY
     Dosage: 30 MG, BID
     Route: 048
     Dates: start: 20080914
  3. IMURAN (AZATHIOPRINE) [Concomitant]
     Dosage: UNK
     Dates: start: 20100823
  4. MEDROL [Concomitant]
     Dosage: UNK
     Dates: start: 20080914
  5. CELLCEPT [Concomitant]
     Dosage: UNK
     Dates: end: 20100820

REACTIONS (2)
  - Gestational hypertension [Recovered/Resolved]
  - Exposure during pregnancy [Recovered/Resolved]
